FAERS Safety Report 9775003 (Version 1)
Quarter: 2013Q4

REPORT INFORMATION
  Report Type: Spontaneous
  Country: US (occurrence: US)
  Receive Date: 20131220
  Receipt Date: 20131220
  Transmission Date: 20140711
  Serious: No
  Sender: FDA-Public Use
  Company Number: US-GLAXOSMITHKLINE-A1035410A

PATIENT
  Age: 75 Year
  Sex: Male

DRUGS (5)
  1. AVODART [Suspect]
     Indication: BENIGN PROSTATIC HYPERPLASIA
     Dosage: 1CAP PER DAY
     Route: 048
     Dates: start: 201304
  2. BLOOD PRESSURE MEDICATION [Concomitant]
  3. DIURETIC [Concomitant]
  4. CHOLESTEROL [Concomitant]
  5. NEXIUM [Concomitant]

REACTIONS (2)
  - Weight increased [Not Recovered/Not Resolved]
  - Sexual dysfunction [Unknown]
